FAERS Safety Report 6441189-2 (Version None)
Quarter: 2009Q4

REPORT INFORMATION
  Report Type: 
  Country: None (occurrence: None)
  Receive Date: 20091116
  Receipt Date: 20091106
  Transmission Date: 20100525
  Serious: Yes (Other)
  Sender: FDA-Public Use
  Company Number: JP-ELI_LILLY_AND_COMPANY-JP200909001769

PATIENT
  Sex: Female
  Weight: 57 kg

DRUGS (9)
  1. HUMALOG [Suspect]
     Indication: GESTATIONAL DIABETES
     Dosage: 2-2-2
     Route: 058
     Dates: start: 20090825, end: 20090903
  2. HUMALOG [Suspect]
     Dosage: 2-4-6
     Route: 058
     Dates: start: 20090904, end: 20090904
  3. HUMALOG [Suspect]
     Dosage: 6-4-6
     Route: 058
     Dates: start: 20090905, end: 20090906
  4. HUMALOG [Suspect]
     Dosage: 8-8-10
     Route: 058
     Dates: start: 20090907, end: 20090907
  5. HUMALOG [Suspect]
     Dosage: 12-8-10
     Route: 058
     Dates: start: 20090908, end: 20090909
  6. HUMALOG [Suspect]
     Dosage: 14-10-12
     Route: 058
     Dates: start: 20090910, end: 20090913
  7. HUMALOG [Suspect]
     Dosage: 6-4-5
     Route: 058
     Dates: start: 20090914, end: 20090916
  8. UTEMERIN [Concomitant]
     Indication: THREATENED LABOUR
     Dosage: 5 MG, AS NEEDED
     Route: 048
  9. ZITHROMAX [Concomitant]
     Indication: CHLAMYDIAL CERVICITIS
     Dosage: 1000 MG, AS NEEDED
     Route: 048

REACTIONS (3)
  - DRUG EXPOSURE DURING PREGNANCY [None]
  - HEPATIC FUNCTION ABNORMAL [None]
  - PREMATURE LABOUR [None]
